FAERS Safety Report 15343898 (Version 1)
Quarter: 2018Q3

REPORT INFORMATION
  Report Type: Report from Study
  Country: FR (occurrence: FR)
  Receive Date: 20180903
  Receipt Date: 20180903
  Transmission Date: 20181010
  Serious: Yes (Death, Life-Threatening, Hospitalization, Other)
  Sender: FDA-Public Use
  Company Number: FR-BRISTOL-MYERS SQUIBB COMPANY-BMS-2018-080250

PATIENT
  Age: 19 Year
  Sex: Male

DRUGS (3)
  1. SOLUPRED                           /00016201/ [Concomitant]
     Active Substance: PREDNISOLONE
     Indication: GLIOMA
     Dosage: 120 MG, QD
     Route: 048
     Dates: start: 20180805
  2. ESOMEPRAZOLE [Concomitant]
     Active Substance: ESOMEPRAZOLE
     Indication: GASTROOESOPHAGEAL REFLUX DISEASE
     Dosage: 20 MG, QD
     Route: 048
     Dates: start: 20180726
  3. DASATINIB. [Suspect]
     Active Substance: DASATINIB
     Indication: GLIOMA
     Dosage: 250 MG, QD
     Route: 048
     Dates: start: 20180723

REACTIONS (2)
  - Delirium [Unknown]
  - Peritonitis [Fatal]

NARRATIVE: CASE EVENT DATE: 20180820
